FAERS Safety Report 15324556 (Version 1)
Quarter: 2018Q3

REPORT INFORMATION
  Report Type: Spontaneous
  Country: US (occurrence: US)
  Receive Date: 20180828
  Receipt Date: 20180828
  Transmission Date: 20181010
  Serious: Yes (Life-Threatening, Other)
  Sender: FDA-Public Use
  Company Number: US-SUN PHARMACEUTICAL INDUSTRIES LTD-2018US-177746

PATIENT
  Age: 46 Year
  Sex: Male

DRUGS (1)
  1. TESTOSTERONE. [Suspect]
     Active Substance: TESTOSTERONE
     Indication: BLOOD TESTOSTERONE DECREASED
     Dosage: 250 MG, 1/WEEK
     Route: 030
     Dates: start: 20180525, end: 20180614

REACTIONS (13)
  - Product deposit [Unknown]
  - Cardiac failure [Unknown]
  - Pneumonia [Unknown]
  - Chest pain [Unknown]
  - Injection site reaction [Unknown]
  - Orthopnoea [Unknown]
  - Skin reaction [Unknown]
  - Renal failure [Unknown]
  - Abdominal distension [Recovered/Resolved]
  - Oedema peripheral [Recovered/Resolved]
  - Hypersensitivity [Unknown]
  - Ventricular tachycardia [Unknown]
  - Poor quality drug administered [Unknown]

NARRATIVE: CASE EVENT DATE: 2018
